FAERS Safety Report 22654328 (Version 1)
Quarter: 2023Q2

REPORT INFORMATION
  Report Type: Spontaneous
  Country: US (occurrence: US)
  Receive Date: 20230629
  Receipt Date: 20230629
  Transmission Date: 20230722
  Serious: Yes (Life-Threatening, Hospitalization)
  Sender: FDA-Public Use
  Company Number: US-MYLANLABS-2023M1068158

PATIENT
  Age: 26 Year
  Sex: Male

DRUGS (2)
  1. FENTANYL [Suspect]
     Active Substance: FENTANYL
     Indication: Product used for unknown indication
     Dosage: UNK
     Route: 065
  2. LEUCOVORIN CALCIUM [Suspect]
     Active Substance: LEUCOVORIN CALCIUM
     Indication: Hypocalcaemia
     Dosage: UNK, QD, FOR THE FIRST 3 WEEKS
     Route: 042

REACTIONS (11)
  - Overdose [Unknown]
  - Respiratory failure [Unknown]
  - Rhabdomyolysis [Unknown]
  - Hypoalbuminaemia [Unknown]
  - Sepsis [Unknown]
  - Jugular vein thrombosis [Unknown]
  - Acute kidney injury [Unknown]
  - Hyperphosphataemia [Unknown]
  - Hypocalcaemia [Recovered/Resolved]
  - Hypercalcaemia [Unknown]
  - Extraskeletal ossification [Unknown]
